FAERS Safety Report 15370213 (Version 2)
Quarter: 2018Q4

REPORT INFORMATION
  Report Type: Report from Study
  Country: CO (occurrence: CO)
  Receive Date: 20180911
  Receipt Date: 20181011
  Transmission Date: 20190204
  Serious: Yes (Hospitalization)
  Sender: FDA-Public Use
  Company Number: CO-INCYTE CORPORATION-2018IN008947

PATIENT

DRUGS (2)
  1. JAKAVI [Suspect]
     Active Substance: RUXOLITINIB
     Dosage: 20 MG, Q12H
     Route: 048
     Dates: start: 201702
  2. JAKAVI [Suspect]
     Active Substance: RUXOLITINIB
     Indication: MYELOFIBROSIS
     Dosage: 40 MG, QD
     Route: 048

REACTIONS (8)
  - Inappropriate schedule of product administration [Unknown]
  - Bronchitis [Recovered/Resolved]
  - Posture abnormal [Unknown]
  - Neutrophil count increased [Unknown]
  - Influenza [Unknown]
  - Pneumonia [Unknown]
  - Gait disturbance [Unknown]
  - Pyrexia [Unknown]

NARRATIVE: CASE EVENT DATE: 20180823
